FAERS Safety Report 11324222 (Version 1)
Quarter: 2015Q3

REPORT INFORMATION
  Report Type: Spontaneous
  Country: CH (occurrence: CH)
  Receive Date: 20150730
  Receipt Date: 20150730
  Transmission Date: 20151125
  Serious: Yes (Congenital Anomaly)
  Sender: FDA-Public Use
  Company Number: CH-JNJFOC-20150718663

PATIENT
  Age: 0 Year
  Sex: Female

DRUGS (3)
  1. TRAMADOL HYDROCHLORIDE. [Suspect]
     Active Substance: TRAMADOL HYDROCHLORIDE
     Indication: PROCEDURAL PAIN
     Route: 064
     Dates: start: 201312, end: 201401
  2. MALARONE [Suspect]
     Active Substance: ATOVAQUONE\PROGUANIL HYDROCHLORIDE
     Indication: MALARIA PROPHYLAXIS
     Route: 064
     Dates: start: 201308, end: 201309
  3. MEPHAQUIN [Suspect]
     Active Substance: MEFLOQUINE
     Indication: MALARIA PROPHYLAXIS
     Route: 064
     Dates: start: 201308, end: 201309

REACTIONS (2)
  - Dysmorphism [Not Recovered/Not Resolved]
  - Exposure via father [Recovered/Resolved]

NARRATIVE: CASE EVENT DATE: 201308
